FAERS Safety Report 22210526 (Version 1)
Quarter: 2023Q2

REPORT INFORMATION
  Report Type: Spontaneous
  Country: FR (occurrence: FR)
  Receive Date: 20230414
  Receipt Date: 20230414
  Transmission Date: 20230722
  Serious: Yes (Hospitalization, Other)
  Sender: FDA-Public Use
  Company Number: FR-ABBVIE-4728363

PATIENT
  Age: 41 Year
  Sex: Female
  Weight: 61 kg

DRUGS (14)
  1. DEPAKOTE [Suspect]
     Active Substance: DIVALPROEX SODIUM
     Indication: Depression
     Route: 048
     Dates: start: 20230221, end: 20230313
  2. TAHOR [Concomitant]
     Active Substance: ATORVASTATIN CALCIUM
     Indication: Product used for unknown indication
  3. GAVISCON [ALGELDRATE;SODIUM ALGINATE] (ALGELDRATE, S ) [Concomitant]
     Indication: Product used for unknown indication
  4. UVEDOSE (COLECALCIFEROL) [Concomitant]
     Indication: Product used for unknown indication
  5. TRELEGY ELLIPTA [Concomitant]
     Active Substance: FLUTICASONE FUROATE\UMECLIDINIUM BROMIDE\VILANTEROL TRIFENATATE
     Indication: Product used for unknown indication
  6. PREDNISONE [Concomitant]
     Active Substance: PREDNISONE
     Indication: Product used for unknown indication
  7. PRIMPERAN [Concomitant]
     Active Substance: METOCLOPRAMIDE HYDROCHLORIDE
     Indication: Product used for unknown indication
  8. GAVISCON [ALGELDRATE;SODIUM ALGINATE] (ALGELDRATE, SODIUM ALGINATE) [Concomitant]
     Indication: Product used for unknown indication
  9. INEXIUM [ESOMEPRAZOLE SODIUM] (ESOMEPRAZOLE SODIUM) [Concomitant]
     Indication: Product used for unknown indication
  10. TRELEGY (FLUTICASONE FUROATE, UMECLIDINIUM BROMIDE) [Concomitant]
     Indication: Product used for unknown indication
  11. MONOPEN (BENZYLPENICILLIN POTASSIUM) [Concomitant]
     Indication: Product used for unknown indication
  12. TRACLEER [Suspect]
     Active Substance: BOSENTAN
     Indication: Systemic scleroderma
     Route: 048
     Dates: start: 20221215
  13. CELLCEPT [MYCOPHENOLATE MOFETIL] (MYCOPHENOLATE MOFETIL) [Concomitant]
     Indication: Product used for unknown indication
  14. VENTOLINE [SALBUTAMOL] (SALBUTAMOL) [Concomitant]
     Indication: Product used for unknown indication

REACTIONS (1)
  - Cholestasis [Recovering/Resolving]

NARRATIVE: CASE EVENT DATE: 20230313
